FAERS Safety Report 12402170 (Version 2)
Quarter: 2016Q2

REPORT INFORMATION
  Report Type: Spontaneous
  Country: US (occurrence: US)
  Receive Date: 20160525
  Receipt Date: 20160527
  Transmission Date: 20160815
  Serious: Yes (Other)
  Sender: FDA-Public Use
  Company Number: US-SA-2016SA010656

PATIENT
  Age: 78 Year
  Sex: Male

DRUGS (2)
  1. NOVOLOG [Concomitant]
     Active Substance: INSULIN ASPART
     Dosage: ON A SLIDING SCALE
  2. LANTUS [Suspect]
     Active Substance: INSULIN GLARGINE
     Indication: TYPE 2 DIABETES MELLITUS
     Dosage: DOSE:50 UNIT(S)
     Route: 065

REACTIONS (5)
  - Dizziness [Unknown]
  - Hypoglycaemia [Unknown]
  - Intervertebral disc disorder [Unknown]
  - Glycosylated haemoglobin increased [Unknown]
  - Hyperhidrosis [Unknown]
